FAERS Safety Report 9563583 (Version 1)
Quarter: 2013Q3

REPORT INFORMATION
  Report Type: Spontaneous
  Country: US (occurrence: None)
  Receive Date: 20130926
  Receipt Date: 20130926
  Transmission Date: 20140515
  Serious: Yes (Hospitalization)
  Sender: FDA-Public Use
  Company Number: None

PATIENT
  Age: 61 Year
  Sex: Male
  Weight: 69.9 kg

DRUGS (1)
  1. CETUXIMAB (ERBITUX) (714692) [Suspect]

REACTIONS (7)
  - Oral pain [None]
  - Odynophagia [None]
  - Dysgeusia [None]
  - Parosmia [None]
  - Hypophagia [None]
  - Mucosal inflammation [None]
  - Infrequent bowel movements [None]
